FAERS Safety Report 4342709-4 (Version None)
Quarter: 2004Q1

REPORT INFORMATION
  Report Type: 
  Country: None (occurrence: None)
  Receive Date: 20040213
  Receipt Date: 20031017
  Transmission Date: 20041129
  Serious: Yes (Other)
  Sender: FDA-Public Use
  Company Number: 349610

PATIENT
  Age: 30 Year
  Sex: Male
  Weight: 80.7 kg

DRUGS (4)
  1. PEGASYS [Suspect]
     Indication: HEPATITIS C
     Dosage: SUBCUTANEOUS
     Route: 058
     Dates: start: 20021217, end: 20031010
  2. ANTIDEPRESSANT NOS [Concomitant]
  3. TPN [Concomitant]
  4. REBETOL9RIBAVIRIN) [Suspect]
     Indication: HEPATITIS C
     Dosage: 1000 MG DAILY ORAL
     Route: 048
     Dates: start: 20021217, end: 20031019

REACTIONS (2)
  - COUGH [None]
  - PNEUMONIA [None]
